FAERS Safety Report 10080776 (Version 1)
Quarter: 2014Q2

REPORT INFORMATION
  Report Type: Spontaneous
  Country: US (occurrence: US)
  Receive Date: 20140416
  Receipt Date: 20140416
  Transmission Date: 20141212
  Serious: No
  Sender: FDA-Public Use
  Company Number: US-BAYER-2014-056416

PATIENT
  Age: 27 Year
  Sex: Female

DRUGS (2)
  1. ALEVE TABLET [Suspect]
     Indication: HEADACHE
     Dosage: 2 DF, QD
     Route: 048
     Dates: start: 2009
  2. METFORMIN [Concomitant]

REACTIONS (1)
  - Incorrect drug administration duration [None]
